FAERS Safety Report 25017194 (Version 1)
Quarter: 2025Q1

REPORT INFORMATION
  Report Type: Spontaneous
  Country: US (occurrence: US)
  Receive Date: 20250227
  Receipt Date: 20250227
  Transmission Date: 20250409
  Serious: Yes (Other)
  Sender: MICRO LABS
  Company Number: US-862174955-ML2025-00920

PATIENT
  Age: 82 Year
  Sex: Female
  Weight: 82 kg

DRUGS (2)
  1. METHENAMINE HIPPURATE [Suspect]
     Active Substance: METHENAMINE HIPPURATE
     Indication: Cystitis
     Dates: start: 2024, end: 20250215
  2. ARMOUR THYROID [Concomitant]
     Active Substance: THYROID, PORCINE
     Indication: Autoimmune thyroiditis

REACTIONS (2)
  - Sepsis [Unknown]
  - Hypertension [Unknown]

NARRATIVE: CASE EVENT DATE: 20240101
